FAERS Safety Report 22904230 (Version 4)
Quarter: 2025Q2

REPORT INFORMATION
  Report Type: Report from Study
  Country: US (occurrence: US)
  Receive Date: 20230905
  Receipt Date: 20250429
  Transmission Date: 20250717
  Serious: Yes (Other)
  Sender: ABBVIE
  Company Number: US-ABBVIE-5392082

PATIENT
  Age: 79 Year
  Sex: Male
  Weight: 90.71 kg

DRUGS (3)
  1. SKYRIZI [Suspect]
     Active Substance: RISANKIZUMAB-RZAA
     Indication: Psoriasis
     Dosage: LAST ADMIN DATE- 2022
     Route: 058
     Dates: start: 20220215
  2. SKYRIZI [Suspect]
     Active Substance: RISANKIZUMAB-RZAA
     Route: 058
     Dates: start: 20221202
  3. SKYRIZI [Suspect]
     Active Substance: RISANKIZUMAB-RZAA
     Dosage: LAST ADMIN DATE- 2022
     Route: 058
     Dates: start: 20220111

REACTIONS (3)
  - Squamous cell carcinoma [Unknown]
  - Precancerous condition [Unknown]
  - Precancerous skin lesion [Unknown]

NARRATIVE: CASE EVENT DATE: 20241201
